FAERS Safety Report 9983884 (Version 1)
Quarter: 2014Q1

REPORT INFORMATION
  Report Type: Spontaneous
  Country: US (occurrence: US)
  Receive Date: 20140307
  Receipt Date: 20140307
  Transmission Date: 20141002
  Serious: Yes (Other)
  Sender: FDA-Public Use
  Company Number: US-GE HEALTHCARE MEDICAL DIAGNOSTICS-OSCN-PR-0905S-0279

PATIENT
  Age: 41 Year
  Sex: Female

DRUGS (7)
  1. OMNISCAN [Suspect]
     Indication: PRODUCT USED FOR UNKNOWN INDICATION
     Dates: start: 20050827, end: 20050827
  2. OMNISCAN [Suspect]
     Dates: start: 20050912, end: 20050912
  3. OMNISCAN [Suspect]
     Dates: start: 20060315, end: 20060315
  4. OMNISCAN [Suspect]
     Dates: start: 20061011, end: 20061011
  5. OMNISCAN [Suspect]
     Dates: start: 20061013, end: 20061013
  6. OMNISCAN [Suspect]
     Dates: start: 20070523, end: 20070523
  7. OMNISCAN [Suspect]
     Dates: start: 20060316, end: 20060316

REACTIONS (1)
  - Nephrogenic systemic fibrosis [Not Recovered/Not Resolved]
